FAERS Safety Report 11927987 (Version 2)
Quarter: 2016Q1

REPORT INFORMATION
  Report Type: Spontaneous
  Country: US (occurrence: US)
  Receive Date: 20160119
  Receipt Date: 20160212
  Transmission Date: 20160526
  Serious: Yes (Other)
  Sender: FDA-Public Use
  Company Number: US-TEVA-625536USA

PATIENT
  Age: 37 Year
  Sex: Male

DRUGS (1)
  1. COPAXONE [Suspect]
     Active Substance: GLATIRAMER ACETATE
     Indication: MULTIPLE SCLEROSIS
     Route: 058
     Dates: start: 20140825

REACTIONS (7)
  - Multiple sclerosis relapse [Unknown]
  - Central nervous system lesion [Unknown]
  - Secondary progressive multiple sclerosis [Unknown]
  - Confusional state [Unknown]
  - Speech disorder [Unknown]
  - Multiple sclerosis [Unknown]
  - Balance disorder [Unknown]

NARRATIVE: CASE EVENT DATE: 201601
